FAERS Safety Report 6130388-5 (Version None)
Quarter: 2009Q1

REPORT INFORMATION
  Report Type: 
  Country: None (occurrence: None)
  Receive Date: 20090324
  Receipt Date: 20090319
  Transmission Date: 20090719
  Serious: No
  Sender: FDA-Public Use
  Company Number: US-B.I. PHARMACEUTICALS,INC./RIDGEFIELD-2009-BP-02176BP

PATIENT
  Sex: Male

DRUGS (9)
  1. FLOMAX [Suspect]
     Indication: POLLAKIURIA
  2. AVAPRO [Concomitant]
  3. ZETIA [Concomitant]
  4. ASPIRIN [Concomitant]
  5. MINOCYCLIN [Concomitant]
  6. WELLBUTRIN SR [Concomitant]
  7. ACPRIN [Concomitant]
  8. LOUIPAN [Concomitant]
  9. SEREQUAL [Concomitant]

REACTIONS (4)
  - ARTHRALGIA [None]
  - BONE PAIN [None]
  - FATIGUE [None]
  - MYALGIA [None]
